FAERS Safety Report 7612304-X (Version None)
Quarter: 2011Q3

REPORT INFORMATION
  Report Type: 
  Country: None (occurrence: None)
  Receive Date: 20110715
  Receipt Date: 20110707
  Transmission Date: 20111222
  Serious: Yes (Death)
  Sender: FDA-Public Use
  Company Number: JP-AMGEN-JPNCT2011031989

PATIENT
  Age: 66 Year
  Sex: Male
  Weight: 58 kg

DRUGS (20)
  1. IRINOTECAN HCL [Suspect]
     Indication: COLORECTAL CANCER
     Route: 041
     Dates: start: 20100622, end: 20101124
  2. VOALLA [Concomitant]
     Dosage: UNK
     Route: 062
  3. MINOCYCLINE HCL [Concomitant]
     Dosage: UNK
     Route: 048
  4. GOSHAJINKIGAN [Concomitant]
     Dosage: UNK
     Route: 048
  5. PANITUMUMAB [Suspect]
     Indication: COLORECTAL CANCER
     Dosage: 6 MG/KG, Q2WK
     Route: 041
     Dates: start: 20100622, end: 20110222
  6. FLUOROURACIL [Suspect]
     Route: 041
     Dates: start: 20101217, end: 20110222
  7. SHOUSAIKOTOU [Concomitant]
     Dosage: UNK
     Route: 049
  8. RABEPRAZOLE SODIUM [Concomitant]
     Dosage: UNK
     Route: 048
  9. FLUOROURACIL [Suspect]
     Indication: COLORECTAL CANCER
     Route: 041
     Dates: start: 20100622, end: 20101124
  10. LEUCOVORIN CALCIUM [Suspect]
     Indication: COLORECTAL CANCER
     Route: 041
     Dates: start: 20100622, end: 20101124
  11. DECADRON [Concomitant]
     Dosage: UNK
     Route: 042
  12. METHYCOBAL [Concomitant]
     Dosage: UNK
     Route: 048
  13. OXALIPLATIN [Suspect]
     Indication: COLORECTAL CANCER
     Route: 041
     Dates: start: 20101217, end: 20110222
  14. TOPSYM [Concomitant]
     Dosage: UNK
     Route: 062
  15. RAMELTEON [Concomitant]
     Dosage: UNK
     Route: 042
  16. LEUCOVORIN CALCIUM [Suspect]
     Route: 041
     Dates: start: 20101217, end: 20110222
  17. CLOBETASOL PROPIONATE [Concomitant]
     Dosage: UNK
     Route: 062
  18. HACHIAZULE [Concomitant]
     Dosage: UNK
     Route: 049
  19. HIRUDOID [Concomitant]
     Dosage: UNK
     Route: 062
  20. PROMAC [Concomitant]
     Dosage: UNK
     Route: 048

REACTIONS (12)
  - STOMATITIS [None]
  - DISEASE PROGRESSION [None]
  - INFUSION RELATED REACTION [None]
  - ERYTHEMA [None]
  - FLUSHING [None]
  - COLORECTAL CANCER [None]
  - COLORECTAL CANCER METASTATIC [None]
  - DERMATITIS ACNEIFORM [None]
  - HYPOMAGNESAEMIA [None]
  - PRURITUS [None]
  - PARONYCHIA [None]
  - HYPOKALAEMIA [None]
